FAERS Safety Report 10009571 (Version 1)
Quarter: 2014Q1

REPORT INFORMATION
  Report Type: Spontaneous
  Country: US (occurrence: US)
  Receive Date: 20140312
  Receipt Date: 20140312
  Transmission Date: 20141002
  Serious: No
  Sender: FDA-Public Use
  Company Number: US-INCYTE CORPORATION-2012IN002262

PATIENT
  Sex: 0

DRUGS (3)
  1. JAKAFI [Suspect]
     Dosage: 10 MG AT AM AND 5 MG AT PM
     Route: 048
     Dates: start: 20120725
  2. HYDREA [Concomitant]
  3. ALCOHOL [Suspect]
     Route: 048

REACTIONS (2)
  - Feeling abnormal [Unknown]
  - Alcohol interaction [Unknown]
